FAERS Safety Report 8144593-X (Version None)
Quarter: 2012Q1

REPORT INFORMATION
  Report Type: 
  Country: None (occurrence: None)
  Receive Date: 20120217
  Receipt Date: 20120208
  Transmission Date: 20120608
  Serious: Yes (Other)
  Sender: FDA-Public Use
  Company Number: US-JNJFOC-20120205330

PATIENT
  Sex: Female
  Weight: 56.7 kg

DRUGS (2)
  1. REMICADE [Suspect]
     Indication: COLITIS ULCERATIVE
     Route: 042
     Dates: start: 20120101, end: 20120101
  2. AZULFIDINE [Concomitant]
     Indication: COLITIS ULCERATIVE
     Route: 048

REACTIONS (9)
  - EYE DISORDER [None]
  - DIZZINESS [None]
  - BLINDNESS [None]
  - VISION BLURRED [None]
  - FEELING ABNORMAL [None]
  - VITH NERVE PARALYSIS [None]
  - OCULAR HYPERAEMIA [None]
  - EYE PAIN [None]
  - EYE SWELLING [None]
